FAERS Safety Report 24559496 (Version 1)
Quarter: 2024Q4

REPORT INFORMATION
  Report Type: Report from Study
  Country: BR (occurrence: BR)
  Receive Date: 20241029
  Receipt Date: 20241029
  Transmission Date: 20250115
  Serious: Yes (Hospitalization, Other)
  Sender: ABBVIE
  Company Number: BR-ABBVIE-5977772

PATIENT
  Sex: Female

DRUGS (1)
  1. RINVOQ [Suspect]
     Active Substance: UPADACITINIB
     Indication: Rheumatoid arthritis
     Route: 048
     Dates: start: 20221105

REACTIONS (7)
  - Nephrolithiasis [Recovered/Resolved]
  - Arthritis [Recovering/Resolving]
  - Stress [Unknown]
  - Gait inability [Recovering/Resolving]
  - Asthenia [Recovering/Resolving]
  - Irritability [Not Recovered/Not Resolved]
  - Arthritis [Recovered/Resolved]

NARRATIVE: CASE EVENT DATE: 20240101
